FAERS Safety Report 24562983 (Version 1)
Quarter: 2024Q4

REPORT INFORMATION
  Report Type: Spontaneous
  Country: RO (occurrence: RO)
  Receive Date: 20241030
  Receipt Date: 20241030
  Transmission Date: 20250115
  Serious: Yes (Other)
  Sender: VIIV
  Company Number: RO-VIIV HEALTHCARE-RO2024EME129519

PATIENT

DRUGS (1)
  1. TRIUMEQ [Suspect]
     Active Substance: ABACAVIR SULFATE\DOLUTEGRAVIR SODIUM\LAMIVUDINE
     Indication: HIV infection
     Dosage: UNK, QD
     Dates: start: 2015

REACTIONS (2)
  - Anal papilloma [Unknown]
  - Anogenital warts [Recovered/Resolved]
